FAERS Safety Report 16465823 (Version 1)
Quarter: 2019Q2

REPORT INFORMATION
  Report Type: Spontaneous
  Country: KR (occurrence: KR)
  Receive Date: 20190621
  Receipt Date: 20190621
  Transmission Date: 20190711
  Serious: Yes (Hospitalization)
  Sender: FDA-Public Use
  Company Number: KR-009507513-1905KOR006771

PATIENT
  Sex: Female

DRUGS (5)
  1. SODIUM CHLORIDE. [Concomitant]
     Active Substance: SODIUM CHLORIDE
     Dosage: NORMAL SALINE INJ 100 M /L QUANTITY: 1; DAYS:1
     Dates: start: 20190503, end: 20190503
  2. KEYTRUDA [Suspect]
     Active Substance: PEMBROLIZUMAB
     Indication: CERVIX CARCINOMA
     Dosage: QUANTITY: 2; DAYS:1
     Dates: start: 20190503, end: 20190503
  3. SODIUM CHLORIDE. [Concomitant]
     Active Substance: SODIUM CHLORIDE
     Dosage: 50 ML (NORMAL SALINE) QUANTITY: 2; DAYS:1
     Dates: start: 20190503, end: 20190503
  4. KEYTRUDA [Suspect]
     Active Substance: PEMBROLIZUMAB
     Dosage: QUANTITY: 2; DAYS:1
     Dates: start: 20190527, end: 20190527
  5. SODIUM CHLORIDE. [Concomitant]
     Active Substance: SODIUM CHLORIDE
     Dosage: 100 ML (NORMAL SALINE) QUANTITY: 1; DAYS:1
     Dates: start: 20190502, end: 20190502

REACTIONS (2)
  - Adverse event [Unknown]
  - Product use in unapproved indication [Unknown]

NARRATIVE: CASE EVENT DATE: 20190503
